FAERS Safety Report 7240361-1 (Version None)
Quarter: 2011Q1

REPORT INFORMATION
  Report Type: 
  Country: None (occurrence: None)
  Receive Date: 20110124
  Receipt Date: 20110113
  Transmission Date: 20110831
  Serious: Yes (Death, Life-Threatening, Hospitalization)
  Sender: FDA-Public Use
  Company Number: DE-CELGENEUS-062-21880-11011240

PATIENT
  Age: 76 Year
  Sex: Male
  Weight: 85 kg

DRUGS (6)
  1. DEXAMETHASONE [Suspect]
     Route: 065
     Dates: start: 20101230, end: 20110102
  2. INSULIN [Concomitant]
     Route: 065
  3. METFORMIN [Concomitant]
     Route: 065
  4. DEXAMETHASONE [Suspect]
     Indication: MULTIPLE MYELOMA
     Route: 065
     Dates: start: 20101222, end: 20101225
  5. REVLIMID [Suspect]
     Indication: MULTIPLE MYELOMA
     Route: 048
     Dates: start: 20101222, end: 20110106
  6. ASPIRIN [Concomitant]
     Route: 065

REACTIONS (4)
  - SEPSIS [None]
  - RENAL FAILURE ACUTE [None]
  - PANCYTOPENIA [None]
  - FEBRILE INFECTION [None]
